FAERS Safety Report 6451762-3 (Version None)
Quarter: 2009Q4

REPORT INFORMATION
  Report Type: 
  Country: None (occurrence: None)
  Receive Date: 20091123
  Receipt Date: 20091118
  Transmission Date: 20100525
  Serious: Yes (Hospitalization)
  Sender: FDA-Public Use
  Company Number: CA-EISAI INC.-E2020-05596-SPO-CA

PATIENT
  Sex: Female

DRUGS (2)
  1. ARICEPT [Suspect]
     Dosage: UNKNOWN
     Route: 048
     Dates: start: 20090801
  2. EXELON [Suspect]
     Route: 061
     Dates: start: 20090530, end: 20090801

REACTIONS (1)
  - BLADDER CANCER [None]
